FAERS Safety Report 18841363 (Version 2)
Quarter: 2021Q2

REPORT INFORMATION
  Report Type: Report from Study
  Country: US (occurrence: US)
  Receive Date: 20210203
  Receipt Date: 20210406
  Transmission Date: 20210717
  Serious: No
  Sender: FDA-Public Use
  Company Number: US-TAKEDA-US202025415

PATIENT
  Age: 74 Year
  Sex: Female

DRUGS (16)
  1. TEDUGLUTIDE [Suspect]
     Active Substance: TEDUGLUTIDE
     Dosage: 0.300 UNK
     Route: 065
     Dates: start: 202010
  2. TEDUGLUTIDE [Suspect]
     Active Substance: TEDUGLUTIDE
     Dosage: 0.300 UNK
     Route: 065
     Dates: start: 202010
  3. TEDUGLUTIDE [Suspect]
     Active Substance: TEDUGLUTIDE
     Dosage: 0.300 UNK
     Route: 065
     Dates: start: 202010
  4. TEDUGLUTIDE [Suspect]
     Active Substance: TEDUGLUTIDE
     Dosage: 0.300 UNK,QD
     Route: 058
     Dates: start: 20201027
  5. TEDUGLUTIDE [Suspect]
     Active Substance: TEDUGLUTIDE
     Indication: PRODUCT USED FOR UNKNOWN INDICATION
     Dosage: 0.296 UNK, QD
     Route: 058
     Dates: start: 20191223, end: 20200714
  6. TEDUGLUTIDE [Suspect]
     Active Substance: TEDUGLUTIDE
     Indication: PRODUCT USED FOR UNKNOWN INDICATION
     Dosage: 0.296 UNK, QD
     Route: 058
     Dates: start: 20191223, end: 20200714
  7. TEDUGLUTIDE [Suspect]
     Active Substance: TEDUGLUTIDE
     Dosage: 0.300 UNK,QD
     Route: 058
     Dates: start: 20201027
  8. TEDUGLUTIDE [Suspect]
     Active Substance: TEDUGLUTIDE
     Dosage: 0.300 UNK,QD
     Route: 058
     Dates: start: 20201027
  9. TEDUGLUTIDE [Suspect]
     Active Substance: TEDUGLUTIDE
     Dosage: 0.300 UNK
     Route: 065
     Dates: start: 202010
  10. TEDUGLUTIDE [Suspect]
     Active Substance: TEDUGLUTIDE
     Dosage: 0.300 UNK,QD
     Route: 058
     Dates: start: 20201027
  11. TEDUGLUTIDE [Suspect]
     Active Substance: TEDUGLUTIDE
     Indication: PRODUCT USED FOR UNKNOWN INDICATION
     Dosage: 0.296 UNK, QD
     Route: 058
     Dates: start: 20191223, end: 20200714
  12. TEDUGLUTIDE [Suspect]
     Active Substance: TEDUGLUTIDE
     Dosage: 0.300 UNK
     Route: 065
     Dates: start: 202010
  13. TEDUGLUTIDE [Suspect]
     Active Substance: TEDUGLUTIDE
     Indication: PRODUCT USED FOR UNKNOWN INDICATION
     Dosage: 0.296 UNK, QD
     Route: 058
     Dates: start: 20191223, end: 20200714
  14. TEDUGLUTIDE [Suspect]
     Active Substance: TEDUGLUTIDE
     Dosage: 0.300 UNK
     Route: 065
     Dates: start: 202010
  15. TEDUGLUTIDE [Suspect]
     Active Substance: TEDUGLUTIDE
     Dosage: 0.300 UNK
     Route: 065
     Dates: start: 202010
  16. TEDUGLUTIDE [Suspect]
     Active Substance: TEDUGLUTIDE
     Dosage: 0.300 UNK
     Route: 065
     Dates: start: 202010

REACTIONS (5)
  - Amylase increased [Unknown]
  - Burning sensation [Unknown]
  - Lipase increased [Unknown]
  - Product preparation issue [Unknown]
  - Product quality issue [Unknown]

NARRATIVE: CASE EVENT DATE: 20210302
